FAERS Safety Report 23223702 (Version 2)
Quarter: 2023Q4

REPORT INFORMATION
  Report Type: Report from Study
  Country: US (occurrence: US)
  Receive Date: 20231124
  Receipt Date: 20231212
  Transmission Date: 20240109
  Serious: Yes (Hospitalization, Other)
  Sender: FDA-Public Use
  Company Number: US-ALXN-A202213531

PATIENT
  Age: 46 Year
  Sex: Female

DRUGS (2)
  1. STRENSIQ [Suspect]
     Active Substance: ASFOTASE ALFA
     Indication: Hypophosphatasia
     Dosage: UNK
     Route: 065
  2. DUPIXENT [Suspect]
     Active Substance: DUPILUMAB
     Indication: Asthma
     Dosage: UNK, QW
     Route: 065

REACTIONS (22)
  - COVID-19 [Unknown]
  - Atrial fibrillation [Unknown]
  - Pneumonia fungal [Not Recovered/Not Resolved]
  - Arthralgia [Unknown]
  - Foot fracture [Unknown]
  - Pain in extremity [Unknown]
  - Increased tendency to bruise [Unknown]
  - Cardiac disorder [Unknown]
  - Pulmonary mass [Unknown]
  - Feeling abnormal [Unknown]
  - Headache [Unknown]
  - Pain [Unknown]
  - Illness [Unknown]
  - Depression [Unknown]
  - Neck pain [Unknown]
  - Muscular weakness [Unknown]
  - Back pain [Unknown]
  - Fatigue [Unknown]
  - Contusion [Unknown]
  - Injection site haemorrhage [Unknown]
  - Injection site pain [Unknown]
  - Immune system disorder [Unknown]

NARRATIVE: CASE EVENT DATE: 20230801
